FAERS Safety Report 8798925 (Version 1)
Quarter: 2012Q4

REPORT INFORMATION
  Report Type: 
  Country: CA (occurrence: CA)
  Receive Date: 20120920
  Receipt Date: 20120920
  Transmission Date: 20130627
  Serious: Yes (Other)
  Sender: FDA-Public Use
  Company Number: CHPA2012CA019644

PATIENT
  Age: 89 Year
  Sex: Female

DRUGS (3)
  1. EXCEDRIN ES BACK + BODY [Suspect]
     Indication: BACK PAIN
     Dosage: Unk, Unk
     Route: 048
  2. EXCEDRIN EXTRA STRENGTH [Suspect]
     Dosage: Unk, Unk
     Route: 048
  3. EXCEDRIN MIGRAINE [Suspect]
     Dosage: Unk, Unk
     Route: 048

REACTIONS (5)
  - Heart rate decreased [Recovered/Resolved]
  - Renal impairment [Recovered/Resolved]
  - Gastric haemorrhage [Recovered/Resolved]
  - Diverticulum [Not Recovered/Not Resolved]
  - Deafness [Recovered/Resolved]
